FAERS Safety Report 16758249 (Version 1)
Quarter: 2019Q3

REPORT INFORMATION
  Report Type: Spontaneous
  Country: CA (occurrence: CA)
  Receive Date: 20190830
  Receipt Date: 20190830
  Transmission Date: 20191005
  Serious: Yes (Other)
  Sender: FDA-Public Use
  Company Number: CA-SA-2019SA162270

PATIENT
  Age: 48 Year
  Sex: Female
  Weight: 54.42 kg

DRUGS (1)
  1. AUBAGIO [Suspect]
     Active Substance: TERIFLUNOMIDE
     Indication: MULTIPLE SCLEROSIS
     Dosage: 14 MG, QD
     Route: 048
     Dates: start: 20180924

REACTIONS (5)
  - Vaginal infection [Not Recovered/Not Resolved]
  - Purulent discharge [Not Recovered/Not Resolved]
  - Vaginal ulceration [Not Recovered/Not Resolved]
  - Opportunistic infection [Not Recovered/Not Resolved]
  - Vulval disorder [Not Recovered/Not Resolved]

NARRATIVE: CASE EVENT DATE: 20181204
